FAERS Safety Report 11626215 (Version 1)
Quarter: 2015Q4

REPORT INFORMATION
  Report Type: Spontaneous
  Country: US (occurrence: US)
  Receive Date: 20151013
  Receipt Date: 20151013
  Transmission Date: 20160304
  Serious: No
  Sender: FDA-Public Use
  Company Number: US-MEDA-2015090078

PATIENT

DRUGS (3)
  1. FELBATOL [Suspect]
     Active Substance: FELBAMATE
     Indication: SEIZURE
  2. BANZEL [Suspect]
     Active Substance: RUFINAMIDE
     Indication: SEIZURE
  3. VIMPAT [Suspect]
     Active Substance: LACOSAMIDE
     Indication: SEIZURE

REACTIONS (5)
  - Dizziness [Unknown]
  - Adverse drug reaction [Unknown]
  - Vomiting [Unknown]
  - Weight decreased [Unknown]
  - Dyspepsia [Unknown]
